FAERS Safety Report 8792347 (Version 2)
Quarter: 2014Q2

REPORT INFORMATION
  Report Type: Spontaneous
  Country: US (occurrence: US)
  Receive Date: 20120917
  Receipt Date: 20131112
  Transmission Date: 20141212
  Serious: Yes (Death)
  Sender: FDA-Public Use
  Company Number: US-ROCHE-1127934

PATIENT
  Sex: Male

DRUGS (2)
  1. AVASTIN [Suspect]
     Indication: GALLBLADDER CANCER
     Route: 065
     Dates: start: 20110120
  2. XELODA [Concomitant]
     Route: 065

REACTIONS (2)
  - Death [Fatal]
  - Off label use [Unknown]
